FAERS Safety Report 10416059 (Version 1)
Quarter: 2014Q3

REPORT INFORMATION
  Report Type: Report from Study
  Country: TH (occurrence: TH)
  Receive Date: 20140828
  Receipt Date: 20140828
  Transmission Date: 20150326
  Serious: Yes (Hospitalization)
  Sender: FDA-Public Use
  Company Number: TH-SA-2014SA113226

PATIENT
  Age: 60 Year
  Sex: Female

DRUGS (1)
  1. LANTUS [Suspect]
     Active Substance: INSULIN GLARGINE
     Indication: DIABETES MELLITUS
     Dosage: DOSE:60 UNIT(S)
     Route: 058

REACTIONS (4)
  - Hypoglycaemia [Recovered/Resolved]
  - Sepsis [Recovered/Resolved]
  - Palpitations [Recovered/Resolved]
  - Hypophagia [Recovered/Resolved]
